FAERS Safety Report 18572269 (Version 16)
Quarter: 2025Q4

REPORT INFORMATION
  Report Type: Report from Study
  Country: BR (occurrence: BR)
  Receive Date: 20201202
  Receipt Date: 20251226
  Transmission Date: 20260117
  Serious: Yes (Other)
  Sender: TAKEDA
  Company Number: BR-TAKEDA-2020TUS053699

PATIENT
  Age: 56 Year
  Sex: Female
  Weight: 90 kg

DRUGS (9)
  1. ICATIBANT [Suspect]
     Active Substance: ICATIBANT ACETATE
     Indication: Hereditary angioedema
     Dosage: UNK
  2. ICATIBANT [Suspect]
     Active Substance: ICATIBANT ACETATE
     Dosage: UNK
  3. ICATIBANT [Suspect]
     Active Substance: ICATIBANT ACETATE
     Dosage: UNK
  4. ICATIBANT [Suspect]
     Active Substance: ICATIBANT ACETATE
     Dosage: 30 MILLIGRAM
  5. ICATIBANT [Suspect]
     Active Substance: ICATIBANT ACETATE
     Dosage: UNK
  6. BISOPROLOL [Suspect]
     Active Substance: BISOPROLOL
     Indication: Product use in unapproved indication
     Dosage: 10 MILLIGRAM
  7. OXANDROLONE SPA [Concomitant]
     Dosage: 5 MILLIGRAM, QD
  8. ATORVASTATIN [Concomitant]
     Active Substance: ATORVASTATIN
     Dosage: 10 MILLIGRAM
  9. AMLODIPINE BESYLATE [Concomitant]
     Active Substance: AMLODIPINE BESYLATE
     Dosage: 5 MILLIGRAM

REACTIONS (10)
  - Myocardial infarction [Recovered/Resolved]
  - Depressed mood [Unknown]
  - Stress [Unknown]
  - Hereditary angioedema [Unknown]
  - Pain in extremity [Recovered/Resolved]
  - Fatigue [Recovered/Resolved]
  - Malaise [Unknown]
  - Insomnia [Recovered/Resolved]
  - Somnolence [Recovered/Resolved]
  - Nausea [Recovered/Resolved]
